FAERS Safety Report 6010974-3 (Version None)
Quarter: 2008Q4

REPORT INFORMATION
  Report Type: 
  Country: None (occurrence: None)
  Receive Date: 20081218
  Receipt Date: 20081216
  Transmission Date: 20090506
  Serious: Yes (Hospitalization)
  Sender: FDA-Public Use
  Company Number: B0548993A

PATIENT
  Age: 67 Year
  Sex: Male

DRUGS (15)
  1. VALTREX [Suspect]
     Indication: HERPES SIMPLEX
     Dosage: 500MG TWICE PER DAY
     Route: 048
     Dates: start: 20081127
  2. ZOVIRAX [Suspect]
     Indication: DRUG USE FOR UNKNOWN INDICATION
     Route: 048
  3. GASTER D [Concomitant]
     Dosage: 20MG PER DAY
     Route: 048
  4. ASPIRIN [Concomitant]
     Dosage: 100MG PER DAY
     Route: 048
  5. WARFARIN SODIUM [Concomitant]
     Dosage: 2.25MG PER DAY
     Route: 048
  6. SODIUM BICARBONATE [Concomitant]
     Dosage: 1000MG PER DAY
     Route: 048
  7. SIGMART [Concomitant]
     Dosage: 15MG PER DAY
     Route: 048
  8. KETAS [Concomitant]
     Dosage: 30MG PER DAY
     Route: 048
  9. FOLIAMIN [Concomitant]
     Dosage: 15MG PER DAY
     Route: 048
  10. MECOBALAMIN [Concomitant]
     Route: 048
  11. PHOSBLOCK [Concomitant]
     Dosage: 3000MG PER DAY
     Route: 048
  12. ALOSENN [Concomitant]
     Route: 048
  13. VENCOLL [Concomitant]
     Route: 048
  14. PREDNISOLONE [Concomitant]
     Dosage: 2MG PER DAY
     Route: 048
  15. PENTASA [Concomitant]
     Dosage: 2250MG PER DAY
     Route: 048

REACTIONS (6)
  - CONFUSIONAL STATE [None]
  - DELIRIUM [None]
  - DISCOMFORT [None]
  - HALLUCINATION [None]
  - QUADRIPLEGIA [None]
  - RESTLESSNESS [None]
